FAERS Safety Report 16648960 (Version 1)
Quarter: 2019Q3

REPORT INFORMATION
  Report Type: Report from Study
  Country: US (occurrence: US)
  Receive Date: 20190730
  Receipt Date: 20190730
  Transmission Date: 20191004
  Serious: Yes (Hospitalization, Other)
  Sender: FDA-Public Use
  Company Number: US-BRISTOL-MYERS SQUIBB COMPANY-BMS-2019-073751

PATIENT
  Age: 46 Year
  Sex: Female
  Weight: 51.6 kg

DRUGS (2)
  1. METFORMIN HYDROCHLORIDE. [Suspect]
     Active Substance: METFORMIN HYDROCHLORIDE
     Indication: PRODUCT USED FOR UNKNOWN INDICATION
     Dosage: 500MG IN AM/1000 MG IN PM
     Route: 048
     Dates: start: 20190701
  2. NIVOLUMAB [Suspect]
     Active Substance: NIVOLUMAB
     Indication: COLON CANCER
     Dosage: UNK
     Route: 042
     Dates: start: 20190715

REACTIONS (2)
  - Oxygen saturation decreased [Unknown]
  - Bacterial infection [Unknown]

NARRATIVE: CASE EVENT DATE: 201907
